FAERS Safety Report 13595569 (Version 1)
Quarter: 2017Q2

REPORT INFORMATION
  Report Type: Spontaneous
  Country: US (occurrence: US)
  Receive Date: 20170531
  Receipt Date: 20170531
  Transmission Date: 20170830
  Serious: No
  Sender: FDA-Public Use
  Company Number: US-JNJFOC-20170407900

PATIENT
  Age: 8 Month
  Sex: Male
  Weight: 8.16 kg

DRUGS (2)
  1. MOTRIN INFANTS [Suspect]
     Active Substance: IBUPROFEN
     Indication: PYREXIA
     Route: 048
     Dates: start: 20170406, end: 20170406
  2. MOTRIN INFANTS [Suspect]
     Active Substance: IBUPROFEN
     Route: 048

REACTIONS (2)
  - Crying [Not Recovered/Not Resolved]
  - Burning sensation [Not Recovered/Not Resolved]

NARRATIVE: CASE EVENT DATE: 20170406
